FAERS Safety Report 21918048 (Version 2)
Quarter: 2023Q1

REPORT INFORMATION
  Report Type: Other
  Country: US (occurrence: US)
  Receive Date: 20230127
  Receipt Date: 20230207
  Transmission Date: 20230417
  Serious: No
  Sender: FDA-Public Use
  Company Number: US-DECIPHERA PHARMACEUTICALS LLC-2023US000026

PATIENT
  Sex: Female

DRUGS (1)
  1. QINLOCK [Suspect]
     Active Substance: RIPRETINIB
     Indication: Gastrointestinal stromal tumour
     Dosage: 100 MILLIGRAM, QD
     Route: 048
     Dates: start: 20200713

REACTIONS (6)
  - Nasopharyngitis [Unknown]
  - Dysphagia [Unknown]
  - Oesophageal discomfort [Unknown]
  - Depression [Unknown]
  - Product dose omission in error [Unknown]
  - Underdose [Unknown]
